FAERS Safety Report 9750091 (Version 1)
Quarter: 2013Q4

REPORT INFORMATION
  Report Type: Spontaneous
  Country: DE (occurrence: DE)
  Receive Date: 20131212
  Receipt Date: 20131212
  Transmission Date: 20140711
  Serious: No
  Sender: FDA-Public Use
  Company Number: DE-GILEAD-DE-CVT-100013

PATIENT
  Age: 63 Year
  Sex: Female

DRUGS (7)
  1. RANEXA [Suspect]
     Indication: CORONARY ARTERY DISEASE
     Route: 048
     Dates: start: 20091204, end: 20100106
  2. ASS [Concomitant]
  3. METOPROLOL                         /00376901/ [Concomitant]
  4. MOLSIDOMIN [Concomitant]
  5. RAMIPRIL                           /00885601/ [Concomitant]
  6. SIMVASTATIN [Concomitant]
  7. OMEPRAZOL [Concomitant]

REACTIONS (1)
  - Rash [Not Recovered/Not Resolved]
